FAERS Safety Report 10013857 (Version 1)
Quarter: 2014Q1

REPORT INFORMATION
  Report Type: Spontaneous
  Country: GB (occurrence: GB)
  Receive Date: 20140316
  Receipt Date: 20140316
  Transmission Date: 20141002
  Serious: Yes (Other)
  Sender: FDA-Public Use
  Company Number: GB-MYLANLABS-2014S1004876

PATIENT
  Age: 24 Year
  Sex: Female
  Weight: 69.85 kg

DRUGS (2)
  1. DOXYCYCLINE [Suspect]
     Indication: MALARIA PROPHYLAXIS
     Dosage: ONE PER DAY
     Route: 048
     Dates: start: 20140128, end: 20140214
  2. DOXYCYCLINE [Suspect]
     Indication: MALARIA PROPHYLAXIS

REACTIONS (2)
  - Gastric ulcer [Unknown]
  - Photosensitivity reaction [Unknown]
